FAERS Safety Report 8984136 (Version 1)
Quarter: 2012Q4

REPORT INFORMATION
  Report Type: Spontaneous
  Country: US (occurrence: None)
  Receive Date: 20121219
  Receipt Date: 20121219
  Transmission Date: 20130627
  Serious: No
  Sender: FDA-Public Use
  Company Number: None

PATIENT

DRUGS (2)
  1. LOVENOX [Suspect]
     Dosage: Implant  injection  80 mg  single dose syringe
  2. LOVENOX [Suspect]
     Dosage: Injectable  injection  60 mg   single dose syringe

REACTIONS (3)
  - Medication error [None]
  - Product packaging issue [None]
  - Circumstance or information capable of leading to medication error [None]
